FAERS Safety Report 12168672 (Version 2)
Quarter: 2018Q1

REPORT INFORMATION
  Report Type: Spontaneous
  Country: JP (occurrence: JP)
  Receive Date: 20160310
  Receipt Date: 20180316
  Transmission Date: 20180508
  Serious: Yes (Other)
  Sender: FDA-Public Use
  Company Number: JP-PFIZER INC-2016140007

PATIENT
  Sex: Male
  Weight: 51.55 kg

DRUGS (4)
  1. SUTENT [Suspect]
     Active Substance: SUNITINIB MALATE
     Indication: RENAL CELL CARCINOMA
     Dosage: 25 MG, CYCLIC (4 WEEKS ON/2 WEEKS OFF)
     Route: 048
     Dates: start: 200810, end: 20150430
  2. AMLODIN [Concomitant]
     Active Substance: AMLODIPINE BESYLATE
     Dosage: UNK
     Dates: start: 20100415
  3. BLOPRESS [Concomitant]
     Active Substance: CANDESARTAN CILEXETIL
     Dosage: UNK
     Dates: start: 20131211
  4. TAKEPRON [Concomitant]
     Active Substance: LANSOPRAZOLE
     Dosage: UNK
     Dates: start: 20100715

REACTIONS (10)
  - Hypothyroidism [Unknown]
  - Bile duct stone [Recovering/Resolving]
  - Gingivitis [Unknown]
  - Stomatitis [Unknown]
  - Gingival swelling [Unknown]
  - Palmar-plantar erythrodysaesthesia syndrome [Unknown]
  - Renal impairment [Unknown]
  - Hypertension [Unknown]
  - Cholecystitis acute [Unknown]
  - Periodontitis [Unknown]

NARRATIVE: CASE EVENT DATE: 201006
